FAERS Safety Report 9656445 (Version 1)
Quarter: 2013Q4

REPORT INFORMATION
  Report Type: Spontaneous
  Country: FR (occurrence: FR)
  Receive Date: 20131030
  Receipt Date: 20131030
  Transmission Date: 20140711
  Serious: Yes (Other)
  Sender: FDA-Public Use
  Company Number: FR-MERCK-1310FRA011698

PATIENT
  Age: 95 Year
  Sex: Female

DRUGS (1)
  1. INVANZ [Suspect]
     Indication: URINARY TRACT INFECTION
     Dosage: 10 MG, QD
     Route: 042
     Dates: start: 20130927, end: 20131006

REACTIONS (3)
  - Muscular weakness [Recovered/Resolved]
  - Abasia [Recovered/Resolved]
  - Dysphagia [Recovered/Resolved]
